FAERS Safety Report 5340052-8 (Version None)
Quarter: 2007Q2

REPORT INFORMATION
  Report Type: 
  Country: None (occurrence: None)
  Receive Date: 20070531
  Receipt Date: 20070525
  Transmission Date: 20071010
  Serious: Yes (Death)
  Sender: FDA-Public Use
  Company Number: AT-ASTRAZENECA-2007PK01042

PATIENT
  Age: 31144 Day

DRUGS (1)
  1. CASODEX [Suspect]
     Dates: end: 20060531

REACTIONS (1)
  - DEATH [None]
